FAERS Safety Report 7316039-2 (Version None)
Quarter: 2011Q1

REPORT INFORMATION
  Report Type: 
  Country: None (occurrence: None)
  Receive Date: 20110225
  Receipt Date: 20110223
  Transmission Date: 20110831
  Serious: Yes (Death, Hospitalization)
  Sender: FDA-Public Use
  Company Number: PHHO2009DE00566

PATIENT
  Sex: Female

DRUGS (4)
  1. NO TREATMENT RECEIVED [Suspect]
     Indication: RENAL TRANSPLANT
  2. SANDIMMUNE [Suspect]
     Indication: RENAL TRANSPLANT
     Dosage: 125 MG, BID
     Route: 048
     Dates: start: 20080716, end: 20081021
  3. DECORTIN [Suspect]
     Indication: RENAL TRANSPLANT
     Dosage: 5 MG, QD
     Dates: start: 20080716, end: 20081021
  4. MYFORTIC [Suspect]
     Indication: RENAL TRANSPLANT
     Dosage: 720 MG, BID
     Route: 048
     Dates: start: 20080716, end: 20081021

REACTIONS (6)
  - PYREXIA [None]
  - DYSPNOEA [None]
  - ACUTE RESPIRATORY DISTRESS SYNDROME [None]
  - COUGH [None]
  - CHILLS [None]
  - PNEUMOCYSTIS JIROVECI PNEUMONIA [None]
